FAERS Safety Report 4478644-0 (Version None)
Quarter: 2004Q4

REPORT INFORMATION
  Report Type: 
  Country: None (occurrence: None)
  Receive Date: 20041019
  Receipt Date: 20040915
  Transmission Date: 20050328
  Serious: Yes (Other)
  Sender: FDA-Public Use
  Company Number: US-MERCK-0409USA01375

PATIENT
  Age: 83 Year
  Sex: Female
  Weight: 54 kg

DRUGS (18)
  1. INVANZ [Suspect]
     Indication: POSTOPERATIVE CARE
     Route: 051
     Dates: start: 20040801, end: 20040803
  2. SYNTHROID [Concomitant]
     Route: 048
  3. FOLIC ACID [Concomitant]
     Route: 048
  4. DEMEROL [Concomitant]
     Route: 065
  5. TAMOXIFEN CITRATE [Concomitant]
     Indication: BREAST CANCER
     Route: 065
  6. TAMOXIFEN CITRATE [Concomitant]
     Indication: MASTECTOMY
     Route: 065
  7. TIMOLOL [Concomitant]
     Route: 047
  8. ATARAX [Concomitant]
     Route: 065
  9. LEVOXYL [Concomitant]
     Route: 065
  10. LOPRESSOR [Concomitant]
     Route: 065
  11. LASIX [Concomitant]
     Route: 065
  12. IRON (UNSPECIFIED) [Concomitant]
     Route: 065
  13. COLCHICINE [Concomitant]
     Route: 065
  14. ASPIRIN [Concomitant]
     Route: 065
  15. ZESTRIL [Concomitant]
     Route: 065
  16. VITAMINS (UNSPECIFIED) [Concomitant]
     Route: 065
  17. PROTONIX [Concomitant]
     Route: 065
  18. EPOGEN [Concomitant]
     Route: 065

REACTIONS (4)
  - CONVULSION [None]
  - DEHYDRATION [None]
  - LOSS OF CONSCIOUSNESS [None]
  - RENAL IMPAIRMENT [None]
